FAERS Safety Report 5298756-1 (Version None)
Quarter: 2007Q2

REPORT INFORMATION
  Report Type: 
  Country: None (occurrence: None)
  Receive Date: 20070417
  Receipt Date: 20070405
  Transmission Date: 20071010
  Serious: Yes (Other)
  Sender: FDA-Public Use
  Company Number: PHBS2007BR06196

PATIENT
  Sex: Female

DRUGS (1)
  1. VOLTAREN [Suspect]
     Dosage: 75 MG, UNK
     Route: 030

REACTIONS (3)
  - NECROSIS [None]
  - SKIN DISCOMFORT [None]
  - SUBCUTANEOUS ABSCESS [None]
